FAERS Safety Report 21380574 (Version 1)
Quarter: 2022Q3

REPORT INFORMATION
  Report Type: Spontaneous
  Country: US (occurrence: None)
  Receive Date: 20220923
  Receipt Date: 20220923
  Transmission Date: 20221027
  Serious: No
  Sender: FDA-Public Use
  Company Number: None

PATIENT
  Sex: Female

DRUGS (6)
  1. VERZENIO [Suspect]
     Active Substance: ABEMACICLIB
     Indication: Breast cancer female
     Dosage: 100 MG ORAL?TAKE 1 TABLET BY MOUTH 2 TIMES DAILY.
     Route: 048
     Dates: start: 20211208
  2. GABAPENTIN [Concomitant]
  3. HYDROCO/APAP [Concomitant]
  4. LETROZOLE [Concomitant]
  5. METHYLPRED [Concomitant]
  6. ONDANSETRON [Concomitant]
     Active Substance: ONDANSETRON

REACTIONS (2)
  - Surgery [None]
  - Therapy interrupted [None]
